FAERS Safety Report 25902581 (Version 1)
Quarter: 2025Q4

REPORT INFORMATION
  Report Type: Spontaneous
  Country: US (occurrence: US)
  Receive Date: 20251009
  Receipt Date: 20251009
  Transmission Date: 20260119
  Serious: Yes (Death)
  Sender: PFIZER
  Company Number: US-PFIZER INC-PV202400045923

PATIENT
  Age: 53 Year
  Sex: Female
  Weight: 57.7 kg

DRUGS (2)
  1. DAURISMO [Suspect]
     Active Substance: GLASDEGIB
     Indication: Myelodysplastic syndrome
     Dosage: 100 MG, DAILY
     Route: 048
  2. DAURISMO [Suspect]
     Active Substance: GLASDEGIB
     Dosage: 100 MG

REACTIONS (2)
  - Death [Fatal]
  - Off label use [Unknown]
